FAERS Safety Report 4351474-6 (Version None)
Quarter: 2004Q2

REPORT INFORMATION
  Report Type: 
  Country: None (occurrence: None)
  Receive Date: 20040428
  Receipt Date: 20040426
  Transmission Date: 20050107
  Serious: Yes (Death, Hospitalization)
  Sender: FDA-Public Use
  Company Number: US-SHR-03-015780

PATIENT
  Age: 58 Year
  Sex: Male
  Weight: 63.5 kg

DRUGS (3)
  1. BETASERON [Suspect]
     Indication: MULTIPLE SCLEROSIS
     Dosage: 8 MIU, EVERY 2D, SUBCUTANEOUS
     Route: 058
     Dates: start: 19940801, end: 20030712
  2. TEMAZEPAM [Concomitant]
  3. PROTONIX [Concomitant]

REACTIONS (13)
  - ASPIRATION [None]
  - CARDIAC ARREST [None]
  - CYSTITIS [None]
  - DEHYDRATION [None]
  - DISEASE PROGRESSION [None]
  - DYSPHAGIA [None]
  - LUNG INFECTION [None]
  - MULTIPLE SCLEROSIS [None]
  - PNEUMONIA [None]
  - RESPIRATORY DISTRESS [None]
  - RESPIRATORY FAILURE [None]
  - STAPHYLOCOCCAL INFECTION [None]
  - VIRAL INFECTION [None]
